FAERS Safety Report 25401970 (Version 1)
Quarter: 2025Q2

REPORT INFORMATION
  Report Type: Spontaneous
  Country: IT (occurrence: IT)
  Receive Date: 20250605
  Receipt Date: 20250605
  Transmission Date: 20250716
  Serious: Yes (Other)
  Sender: CHEPLAPHARM
  Company Number: None

PATIENT
  Age: 48 Year
  Sex: Male

DRUGS (9)
  1. QUETIAPINE [Suspect]
     Active Substance: QUETIAPINE
     Route: 048
  2. RAMIPRIL [Suspect]
     Active Substance: RAMIPRIL
     Indication: Hypertension
     Dosage: DAILY DOSE: 5 MILLIGRAM
     Route: 048
     Dates: end: 20250515
  3. VALPROATE SODIUM [Concomitant]
     Active Substance: VALPROATE SODIUM
  4. CLOTHIAPINE [Concomitant]
     Active Substance: CLOTHIAPINE
  5. TRAZODONE [Concomitant]
     Active Substance: TRAZODONE HYDROCHLORIDE
  6. LEVOTHYROXINE [Concomitant]
     Active Substance: LEVOTHYROXINE
  7. GABAPENTIN [Concomitant]
     Active Substance: GABAPENTIN
  8. INDOMETHACIN [Concomitant]
     Active Substance: INDOMETHACIN
  9. VALSARTAN [Concomitant]
     Active Substance: VALSARTAN
     Dosage: 80 MG AT 8 A.M. AND 8 P.M?DAILY DOSE: 160 MILLIGRAM

REACTIONS (1)
  - Angioedema [Recovering/Resolving]

NARRATIVE: CASE EVENT DATE: 20250514
